FAERS Safety Report 10199993 (Version 5)
Quarter: 2014Q3

REPORT INFORMATION
  Report Type: Report from Study
  Country: US (occurrence: US)
  Receive Date: 20140527
  Receipt Date: 20140710
  Transmission Date: 20150326
  Serious: Yes (Hospitalization)
  Sender: FDA-Public Use
  Company Number: US-ACTELION-A-NJ2014-99212

PATIENT
  Age: 55 Year
  Sex: Female

DRUGS (5)
  1. ROCEPHIN [Concomitant]
     Active Substance: CEFTRIAXONE SODIUM
  2. VANCOMYCIN [Suspect]
     Active Substance: VANCOMYCIN
  3. GENTAMICIN [Suspect]
     Active Substance: GENTAMICIN
  4. VELETRI [Suspect]
     Active Substance: EPOPROSTENOL
     Indication: PULMONARY ARTERIAL HYPERTENSION
     Dosage: 14 NG/KG, PER MIN
     Route: 042
     Dates: start: 201210
  5. TRACLEER [Suspect]
     Active Substance: BOSENTAN\BOSENTAN MONOHYDRATE
     Indication: PULMONARY ARTERIAL HYPERTENSION
     Dosage: UNK
     Route: 048

REACTIONS (13)
  - Drug level increased [Recovered/Resolved]
  - Dizziness [Recovered/Resolved]
  - Renal failure acute [Recovered/Resolved]
  - Tachycardia [Recovered/Resolved]
  - Endocarditis [Recovered/Resolved]
  - Pyrexia [Recovered/Resolved]
  - Blood culture negative [Recovered/Resolved]
  - Fluid overload [Recovered/Resolved]
  - Flushing [Recovered/Resolved]
  - Pneumonia [Unknown]
  - Anaemia [Unknown]
  - Blood creatinine increased [Recovered/Resolved]
  - Dyspnoea [Recovered/Resolved]

NARRATIVE: CASE EVENT DATE: 201403
